FAERS Safety Report 8201382-5 (Version None)
Quarter: 2012Q1

REPORT INFORMATION
  Report Type: 
  Country: None (occurrence: None)
  Receive Date: 20120312
  Receipt Date: 20120306
  Transmission Date: 20120608
  Serious: Yes (Other)
  Sender: FDA-Public Use
  Company Number: US-BAYER-2012-022515

PATIENT

DRUGS (5)
  1. ELMIRON [Concomitant]
  2. CLARITIN [Concomitant]
  3. ALEVE (CAPLET) [Suspect]
     Indication: PAIN
     Dosage: BOTTLE COUNT: NOT REPORTED
     Route: 048
  4. VESICARE [Concomitant]
  5. FIBERCON [Concomitant]

REACTIONS (4)
  - OEDEMA [None]
  - PAIN [None]
  - URINARY RETENTION [None]
  - INFLAMMATION [None]
